FAERS Safety Report 11878369 (Version 1)
Quarter: 2015Q4

REPORT INFORMATION
  Report Type: Spontaneous
  Country: US (occurrence: None)
  Receive Date: 20151229
  Receipt Date: 20151229
  Transmission Date: 20160305
  Serious: Yes (Hospitalization)
  Sender: FDA-Public Use
  Company Number: None

PATIENT
  Age: 71 Year
  Sex: Male
  Weight: 69.9 kg

DRUGS (2)
  1. DALTEPARIN [Suspect]
     Active Substance: DALTEPARIN
     Indication: DEEP VEIN THROMBOSIS
     Route: 058
     Dates: start: 20150603, end: 20151015
  2. ALENDRONATE [Suspect]
     Active Substance: ALENDRONATE SODIUM
     Indication: OSTEOPOROSIS
     Route: 048
     Dates: start: 20111215, end: 20151018

REACTIONS (8)
  - Toothache [None]
  - Haemoglobin decreased [None]
  - Gastric haemorrhage [None]
  - Haematochezia [None]
  - Alcohol use [None]
  - Diverticulitis [None]
  - Gastrointestinal angiodysplasia [None]
  - Oesophagitis ulcerative [None]

NARRATIVE: CASE EVENT DATE: 20151015
